FAERS Safety Report 10012177 (Version 3)
Quarter: 2014Q2

REPORT INFORMATION
  Report Type: Spontaneous
  Country: JP (occurrence: JP)
  Receive Date: 20140314
  Receipt Date: 20140407
  Transmission Date: 20141212
  Serious: Yes (Hospitalization)
  Sender: FDA-Public Use
  Company Number: JP-GLAXOSMITHKLINE-B0976542A

PATIENT
  Age: 11 Year
  Sex: Female
  Weight: 27.3 kg

DRUGS (4)
  1. RELENZA [Suspect]
     Indication: INFLUENZA
     Dosage: 10MG TWICE PER DAY
     Route: 055
     Dates: start: 20140301, end: 20140304
  2. MEDICON [Concomitant]
     Route: 048
     Dates: start: 20140301
  3. MUCODYNE [Concomitant]
     Route: 048
     Dates: start: 20140301
  4. CALONAL [Concomitant]
     Route: 048

REACTIONS (5)
  - Epilepsy [Unknown]
  - Convulsion [Unknown]
  - Loss of consciousness [Recovered/Resolved]
  - Fall [Unknown]
  - Abnormal behaviour [Recovered/Resolved]
